FAERS Safety Report 25861815 (Version 1)
Quarter: 2025Q3

REPORT INFORMATION
  Report Type: Other
  Country: US (occurrence: US)
  Receive Date: 20250930
  Receipt Date: 20250930
  Transmission Date: 20251020
  Serious: Yes (Hospitalization, Other)
  Sender: ANI
  Company Number: US-ANIPHARMA-030712

PATIENT
  Age: 26 Year
  Sex: Male

DRUGS (8)
  1. OXCARBAZEPINE [Suspect]
     Active Substance: OXCARBAZEPINE
     Indication: Product used for unknown indication
  2. LITHIUM [Suspect]
     Active Substance: LITHIUM
     Indication: Mania
  3. CLONAZEPAM [Concomitant]
     Active Substance: CLONAZEPAM
     Indication: Aggression
  4. CLONAZEPAM [Concomitant]
     Active Substance: CLONAZEPAM
     Indication: Aggression
  5. CLONAZEPAM [Concomitant]
     Active Substance: CLONAZEPAM
     Indication: Aggression
  6. LITHIUM [Suspect]
     Active Substance: LITHIUM
     Indication: Mania
     Route: 048
  7. LITHIUM [Suspect]
     Active Substance: LITHIUM
     Indication: Mania
  8. LITHIUM [Suspect]
     Active Substance: LITHIUM
     Indication: Mania
     Route: 048

REACTIONS (4)
  - Treatment noncompliance [Unknown]
  - Acute kidney injury [Unknown]
  - Psychiatric decompensation [Recovering/Resolving]
  - Leukopenia [Unknown]
